FAERS Safety Report 24047970 (Version 4)
Quarter: 2024Q4

REPORT INFORMATION
  Report Type: Spontaneous
  Country: US (occurrence: US)
  Receive Date: 20240703
  Receipt Date: 20241001
  Transmission Date: 20250115
  Serious: Yes (Death, Life-Threatening)
  Sender: IOVANCE BIOTHERAPEUTICS
  Company Number: US-IOVANCE BIOTHERAPEUTICS, INC-2024IOV000035

PATIENT

DRUGS (4)
  1. AMTAGVI [Suspect]
     Active Substance: LIFILEUCEL
     Dosage: UNK, SINGLE
     Route: 042
     Dates: start: 20240521
  2. CYCLOPHOSPHAMIDE [Suspect]
     Active Substance: CYCLOPHOSPHAMIDE
     Indication: Malignant melanoma
     Dosage: UNK
     Route: 042
     Dates: start: 202405, end: 202405
  3. FLUDARABINE [Suspect]
     Active Substance: FLUDARABINE PHOSPHATE
     Indication: Malignant melanoma
     Dosage: UNK
     Route: 042
     Dates: start: 202405, end: 202405
  4. ALDESLEUKIN [Suspect]
     Active Substance: ALDESLEUKIN
     Indication: Malignant melanoma
     Dosage: 6 UNK
     Route: 042
     Dates: start: 202405

REACTIONS (8)
  - Multiple organ dysfunction syndrome [Fatal]
  - Septic shock [Unknown]
  - Flank pain [Unknown]
  - White blood cell count decreased [Unknown]
  - Asthenia [Unknown]
  - Malaise [Unknown]
  - Hypotension [Unknown]
  - Pyrexia [Unknown]

NARRATIVE: CASE EVENT DATE: 20240521
